FAERS Safety Report 9325898 (Version 1)
Quarter: 2013Q2

REPORT INFORMATION
  Report Type: Spontaneous
  Country: US (occurrence: US)
  Receive Date: 20130604
  Receipt Date: 20130604
  Transmission Date: 20140414
  Serious: No
  Sender: FDA-Public Use
  Company Number: US-009507513-1305USA017152

PATIENT
  Sex: Male

DRUGS (6)
  1. PEGINTRON [Suspect]
     Indication: HEPATITIS C
     Dosage: 96 MICROGRAM, QW
     Route: 058
     Dates: start: 20130219
  2. VICTRELIS [Suspect]
     Indication: HEPATITIS C
     Dosage: 4 DF, TID
     Route: 048
     Dates: start: 20130312
  3. RIBAPAK [Suspect]
     Indication: HEPATITIS C
     Dosage: UNK
  4. CELEBREX [Concomitant]
  5. GINKGO [Concomitant]
  6. MILK THISTLE [Concomitant]

REACTIONS (2)
  - Poor quality sleep [Unknown]
  - Stomatitis [Unknown]
